FAERS Safety Report 4600904-0 (Version None)
Quarter: 2005Q1

REPORT INFORMATION
  Report Type: 
  Country: None (occurrence: None)
  Receive Date: 20050127
  Receipt Date: 20041101
  Transmission Date: 20050727
  Serious: No
  Sender: FDA-Public Use
  Company Number: USA041182906

PATIENT
  Age: 50 Year
  Sex: Female

DRUGS (5)
  1. STRATTERA [Suspect]
     Indication: ATTENTION DEFICIT/HYPERACTIVITY DISORDER
     Dosage: 80 MG DAY
     Dates: start: 20040801
  2. IMITREX [Concomitant]
  3. FLUOXETINE [Concomitant]
  4. WELLBUTRIN SR [Concomitant]
  5. LORTAB [Concomitant]

REACTIONS (1)
  - MIGRAINE [None]
